FAERS Safety Report 8133634-1 (Version None)
Quarter: 2012Q1

REPORT INFORMATION
  Report Type: 
  Country: None (occurrence: None)
  Receive Date: 20120213
  Receipt Date: 20120120
  Transmission Date: 20120608
  Serious: Yes (Other)
  Sender: FDA-Public Use
  Company Number: RO-ROCHE-1034811

PATIENT
  Sex: Male
  Weight: 89 kg

DRUGS (4)
  1. BI 207127 [Suspect]
     Indication: HEPATITIS C
     Route: 048
     Dates: start: 20110127, end: 20110814
  2. BI 201335 (HCV PROTEASE INHIBITOR) [Suspect]
     Indication: HEPATITIS C
     Route: 048
     Dates: start: 20110127, end: 20110814
  3. COPEGUS [Suspect]
     Indication: HEPATITIS C
     Route: 048
     Dates: start: 20110815
  4. PEGINTERFERON ALFA-2A [Suspect]
     Indication: HEPATITIS C
     Route: 058
     Dates: start: 20110815

REACTIONS (2)
  - ERYTHEMA [None]
  - RASH PAPULAR [None]
